FAERS Safety Report 25566341 (Version 1)
Quarter: 2025Q3

REPORT INFORMATION
  Report Type: Spontaneous
  Country: US (occurrence: US)
  Receive Date: 20250716
  Receipt Date: 20250716
  Transmission Date: 20251020
  Serious: No
  Sender: NOVO NORDISK
  Company Number: US-NOVOPROD-1275197

PATIENT
  Age: 75 Year
  Sex: Female

DRUGS (1)
  1. OZEMPIC [Suspect]
     Active Substance: SEMAGLUTIDE
     Indication: Type 2 diabetes mellitus
     Dosage: 0.5 MG, QW
     Route: 058
     Dates: start: 2024

REACTIONS (6)
  - Skin discolouration [Not Recovered/Not Resolved]
  - Product use complaint [Not Recovered/Not Resolved]
  - Wrong technique in product usage process [Unknown]
  - Device leakage [Not Recovered/Not Resolved]
  - Device issue [Unknown]
  - Incorrect dose administered [Unknown]
